FAERS Safety Report 8831790 (Version 2)
Quarter: 2012Q4

REPORT INFORMATION
  Report Type: 
  Country: DE (occurrence: DE)
  Receive Date: 20121009
  Receipt Date: 20121109
  Transmission Date: 20130627
  Serious: Yes (Life-Threatening, Other)
  Sender: FDA-Public Use
  Company Number: DE-B.I. PHARMACEUTICALS,INC./RIDGEFIELD-2012-DE-02355DE

PATIENT
  Age: 60 Year
  Sex: Male
  Weight: 85 kg

DRUGS (4)
  1. PRADAXA [Suspect]
     Indication: ATRIAL FIBRILLATION
     Dosage: 300 mg
     Route: 048
     Dates: start: 20120903, end: 20120907
  2. PRADAXA [Suspect]
     Indication: ATRIAL FLUTTER
  3. ASS [Suspect]
     Indication: ATRIAL FIBRILLATION
     Dosage: 100 NR
     Dates: start: 20120903
  4. ASS [Suspect]
     Indication: ATRIAL FLUTTER

REACTIONS (3)
  - Basal ganglia haemorrhage [Recovered/Resolved with Sequelae]
  - Cerebral haemorrhage [Recovered/Resolved with Sequelae]
  - Cerebrovascular accident [Unknown]
